FAERS Safety Report 9879771 (Version 2)
Quarter: 2014Q1

REPORT INFORMATION
  Report Type: Spontaneous
  Country: JP (occurrence: JP)
  Receive Date: 20140206
  Receipt Date: 20140206
  Transmission Date: 20141002
  Serious: Yes (Hospitalization, Other)
  Sender: FDA-Public Use
  Company Number: PHHY2013JP139566

PATIENT
  Age: 76 Year
  Sex: Male
  Weight: 52 kg

DRUGS (9)
  1. CEFEPIME HYDROCHLORIDE SANDOZ [Suspect]
     Indication: INFECTION
     Dosage: 2 G PER DAY
     Route: 042
     Dates: start: 20131119, end: 20131129
  2. TEICOPLANIN [Concomitant]
     Dosage: UNK UKN, UNK
     Route: 042
  3. NEXIUM//ESOMEPRAZOLE MAGNESIUM [Concomitant]
     Route: 048
  4. DEPAS [Concomitant]
     Route: 048
  5. RIFADIN [Concomitant]
     Route: 048
  6. ARGAMATE [Concomitant]
     Route: 048
  7. SENNOSIDE [Concomitant]
     Route: 048
  8. VITAMEDIN [Concomitant]
     Dosage: UNK UKN, UNK
     Route: 048
     Dates: start: 20131127
  9. HEPARIN NA LOCK [Concomitant]
     Route: 048

REACTIONS (3)
  - Speech disorder [Recovered/Resolved]
  - Altered state of consciousness [Recovered/Resolved]
  - Dysphagia [Recovered/Resolved]
